FAERS Safety Report 6247099-8 (Version None)
Quarter: 2009Q2

REPORT INFORMATION
  Report Type: 
  Country: None (occurrence: None)
  Receive Date: 20090626
  Receipt Date: 20090612
  Transmission Date: 20091009
  Serious: Yes (Hospitalization, Other)
  Sender: FDA-Public Use
  Company Number: PHHY2009AU11079

PATIENT
  Sex: Female

DRUGS (5)
  1. GLEEVEC [Suspect]
     Indication: GASTROINTESTINAL STROMAL TUMOUR
     Dosage: 300 MG, BID
     Route: 048
     Dates: start: 20040101
  2. IMODIUM [Concomitant]
  3. ESOMEPRAZOLE MAGNESIUM [Concomitant]
  4. LEVOTHYROXINE SODIUM [Concomitant]
     Dosage: 10O UG/DAY
  5. OSTELIN [Concomitant]
     Dosage: 1000 UNITS DAILY

REACTIONS (5)
  - ANAEMIA [None]
  - ANAEMIA OF CHRONIC DISEASE [None]
  - BONE MARROW FAILURE [None]
  - MYELODYSPLASTIC SYNDROME [None]
  - REFRACTORY ANAEMIA [None]
